FAERS Safety Report 8409603-0 (Version None)
Quarter: 2012Q2

REPORT INFORMATION
  Report Type: 
  Country: None (occurrence: None)
  Receive Date: 20120531
  Receipt Date: 20120531
  Transmission Date: 20120825
  Serious: No
  Sender: FDA-Public Use
  Company Number: None

PATIENT
  Age: 31 Year
  Sex: Female
  Weight: 78.9259 kg

DRUGS (2)
  1. ESCITALOPRAM [Suspect]
     Indication: DEPRESSION
     Dosage: 10MG QD
     Dates: start: 20120325, end: 20120413
  2. ESCITALOPRAM [Suspect]
     Indication: ANXIETY
     Dosage: 10MG QD
     Dates: start: 20120325, end: 20120413

REACTIONS (4)
  - PRODUCT SUBSTITUTION ISSUE [None]
  - INSOMNIA [None]
  - RESTLESSNESS [None]
  - AGITATION [None]
